FAERS Safety Report 8236881-3 (Version None)
Quarter: 2012Q1

REPORT INFORMATION
  Report Type: 
  Country: None (occurrence: None)
  Receive Date: 20120326
  Receipt Date: 20120326
  Transmission Date: 20120608
  Serious: Yes (Life-Threatening)
  Sender: FDA-Public Use
  Company Number: None

PATIENT
  Age: 59 Year
  Sex: Female
  Weight: 53.5244 kg

DRUGS (1)
  1. FERREX 150 MG 1-800-367-3395 [Suspect]
     Indication: IRON DEFICIENCY
     Dosage: ONE / 150MG CAP ONCE A DAY
     Dates: start: 20120218, end: 20120302

REACTIONS (8)
  - DYSPNOEA [None]
  - PAIN [None]
  - SCREAMING [None]
  - MYALGIA [None]
  - HEADACHE [None]
  - DEAFNESS [None]
  - GAIT DISTURBANCE [None]
  - FEELING ABNORMAL [None]
